FAERS Safety Report 8265829-0 (Version None)
Quarter: 2012Q2

REPORT INFORMATION
  Report Type: 
  Country: None (occurrence: None)
  Receive Date: 20120404
  Receipt Date: 20120322
  Transmission Date: 20120825
  Serious: Yes (Disabling, Other)
  Sender: FDA-Public Use
  Company Number: FK201200877

PATIENT
  Age: 42 Year
  Sex: Male

DRUGS (1)
  1. HEPARIN SODIUM INJECTION [Suspect]
     Indication: PRODUCT USED FOR UNKNOWN INDICATION
     Dosage: INTRAVENOUS BOLUS
     Route: 040
     Dates: start: 20080831

REACTIONS (6)
  - CARDIOGENIC SHOCK [None]
  - OPTIC NERVE INJURY [None]
  - ANOXIA [None]
  - HYPOTENSION [None]
  - BLINDNESS [None]
  - MYOCARDIAL INFARCTION [None]
